FAERS Safety Report 25067835 (Version 2)
Quarter: 2025Q1

REPORT INFORMATION
  Report Type: Spontaneous
  Country: US (occurrence: US)
  Receive Date: 20250312
  Receipt Date: 20250313
  Transmission Date: 20250409
  Serious: Yes (Other)
  Sender: Kenvue
  Company Number: US-UCBSA-2025012496

PATIENT
  Sex: Female
  Weight: 1.361 kg

DRUGS (12)
  1. CETIRIZINE HYDROCHLORIDE [Suspect]
     Active Substance: CETIRIZINE HYDROCHLORIDE
     Indication: Asthma
     Dosage: 10 MILLIGRAM, ONCE DAILY (QD)
     Route: 064
  2. CETIRIZINE HYDROCHLORIDE [Suspect]
     Active Substance: CETIRIZINE HYDROCHLORIDE
     Indication: Off label use
  3. FAMOTIDINE [Suspect]
     Active Substance: FAMOTIDINE
     Indication: Asthma
     Route: 064
  4. ALBUTEROL SULFATE [Suspect]
     Active Substance: ALBUTEROL SULFATE
     Indication: Asthma
     Route: 064
  5. BUDESONIDE\FORMOTEROL [Suspect]
     Active Substance: BUDESONIDE\FORMOTEROL
     Indication: Asthma
     Route: 064
  6. FLUTICASONE FUROATE [Suspect]
     Active Substance: FLUTICASONE FUROATE
     Indication: Asthma
     Route: 064
  7. UMECLIDINIUM [Suspect]
     Active Substance: UMECLIDINIUM
     Indication: Asthma
     Route: 064
  8. VILANTEROL [Suspect]
     Active Substance: VILANTEROL
     Indication: Asthma
     Dosage: 25 MICROGRAM, INHALED POWDER ONCE PER DAY
     Route: 064
  9. IPRATROPIUM [Suspect]
     Active Substance: IPRATROPIUM
     Indication: Product used for unknown indication
     Route: 064
  10. METHYLPREDNISOLONE [Suspect]
     Active Substance: METHYLPREDNISOLONE
     Indication: Product used for unknown indication
     Route: 064
  11. MAGNESIUM SULFATE [Suspect]
     Active Substance: MAGNESIUM SULFATE
     Indication: Product used for unknown indication
     Route: 064
  12. MONTELUKAST [Suspect]
     Active Substance: MONTELUKAST
     Indication: Asthma
     Route: 064

REACTIONS (7)
  - Foetal growth restriction [Unknown]
  - Foetal distress syndrome [Unknown]
  - Low birth weight baby [Unknown]
  - Small for dates baby [Unknown]
  - Maternal exposure before pregnancy [Unknown]
  - Maternal exposure during pregnancy [Unknown]
  - Off label use [Unknown]
